FAERS Safety Report 14398551 (Version 1)
Quarter: 2018Q1

REPORT INFORMATION
  Report Type: Spontaneous
  Country: JP (occurrence: JP)
  Receive Date: 20180117
  Receipt Date: 20180117
  Transmission Date: 20180509
  Serious: Yes (Other)
  Sender: FDA-Public Use
  Company Number: JP-CIPLA LTD.-2018JP01456

PATIENT

DRUGS (1)
  1. OLANZAPINE. [Suspect]
     Active Substance: OLANZAPINE
     Indication: DEMENTIA WITH LEWY BODIES
     Dosage: UNK
     Route: 065

REACTIONS (2)
  - Decubitus ulcer [Recovered/Resolved]
  - Akinesia [Unknown]
